FAERS Safety Report 5953953-4 (Version None)
Quarter: 2008Q4

REPORT INFORMATION
  Report Type: 
  Country: None (occurrence: None)
  Receive Date: 20081114
  Receipt Date: 20081107
  Transmission Date: 20090506
  Serious: Yes (Death)
  Sender: FDA-Public Use
  Company Number: US-GENENTECH-269158

PATIENT
  Age: 65 Year
  Sex: Male

DRUGS (12)
  1. RITUXAN [Suspect]
     Indication: NON-HODGKIN'S LYMPHOMA
     Dosage: UNK
     Dates: start: 20020701
  2. RITUXAN [Suspect]
     Dosage: UNK
     Dates: start: 20040110, end: 20040610
  3. RITUXAN [Suspect]
     Dosage: UNK
     Dates: start: 20040610, end: 20050321
  4. CYCLOPHOSPHAMIDE [Concomitant]
     Indication: NON-HODGKIN'S LYMPHOMA
     Dosage: UNK
     Dates: start: 19980701
  5. CYCLOPHOSPHAMIDE [Concomitant]
     Dosage: UNK
     Dates: start: 20020701
  6. DOXORUBICIN HCL [Concomitant]
     Indication: NON-HODGKIN'S LYMPHOMA
     Dosage: UNK
     Dates: start: 19980701
  7. DOXORUBICIN HCL [Concomitant]
     Dosage: UNK
     Dates: start: 20020701
  8. VINCRISTINE [Concomitant]
     Indication: NON-HODGKIN'S LYMPHOMA
     Dosage: UNK
     Dates: start: 19980701
  9. VINCRISTINE [Concomitant]
     Dosage: UNK
     Dates: start: 20020701
  10. PREDNISONE TAB [Concomitant]
     Indication: NON-HODGKIN'S LYMPHOMA
     Dosage: UNK
     Dates: start: 19980701
  11. PREDNISONE TAB [Concomitant]
     Dosage: UNK
     Dates: start: 20020701
  12. FLUDARABINE PHOSPHATE [Concomitant]
     Indication: NON-HODGKIN'S LYMPHOMA
     Dosage: UNK
     Dates: start: 20040110, end: 20040610

REACTIONS (1)
  - PROGRESSIVE MULTIFOCAL LEUKOENCEPHALOPATHY [None]
